FAERS Safety Report 7203600-9 (Version None)
Quarter: 2010Q4

REPORT INFORMATION
  Report Type: 
  Country: None (occurrence: None)
  Receive Date: 20101215
  Receipt Date: 20101126
  Transmission Date: 20110411
  Serious: Yes (Other)
  Sender: FDA-Public Use
  Company Number: HAP-02010-AU

PATIENT
  Sex: Female

DRUGS (1)
  1. IMMUNE GLOBULIN INTRAVENOUS (HUMAN) [Suspect]
     Indication: MULTIFOCAL MOTOR NEUROPATHY
     Dosage: I.V.
     Route: 042

REACTIONS (1)
  - RETINAL VASCULAR OCCLUSION [None]
